FAERS Safety Report 7255264-6 (Version None)
Quarter: 2011Q1

REPORT INFORMATION
  Report Type: 
  Country: None (occurrence: None)
  Receive Date: 20110129
  Receipt Date: 20100318
  Transmission Date: 20110831
  Serious: No
  Sender: FDA-Public Use
  Company Number: US-ABBOTT-10P-163-0629324-00

PATIENT
  Sex: Female
  Weight: 77.18 kg

DRUGS (2)
  1. ATARAX [Concomitant]
     Indication: PRODUCT USED FOR UNKNOWN INDICATION
  2. HUMIRA [Suspect]
     Indication: PSORIASIS
     Dosage: DAY 8
     Dates: start: 20100218

REACTIONS (2)
  - PRURITUS GENERALISED [None]
  - INJECTION SITE PAIN [None]
